FAERS Safety Report 5736207-0 (Version None)
Quarter: 2008Q2

REPORT INFORMATION
  Report Type: 
  Country: None (occurrence: None)
  Receive Date: 20080509
  Receipt Date: 20080509
  Transmission Date: 20081010
  Serious: Yes (Hospitalization)
  Sender: FDA-Public Use
  Company Number: None

PATIENT
  Sex: Male
  Weight: 97.977 kg

DRUGS (2)
  1. DIGITEK TABS   .25 MG B 146  BERTEK [Suspect]
     Indication: CARDIAC FAILURE CONGESTIVE
     Dosage: ONE TABLE DAILY
     Dates: start: 20080418, end: 20080430
  2. DIGITEK TABS   .25 MG B 146  BERTEK [Suspect]
     Indication: CARDIOMYOPATHY
     Dosage: ONE TABLE DAILY
     Dates: start: 20080418, end: 20080430

REACTIONS (9)
  - DIZZINESS [None]
  - HEADACHE [None]
  - HYPOAESTHESIA [None]
  - HYPOAESTHESIA FACIAL [None]
  - ILL-DEFINED DISORDER [None]
  - INSOMNIA [None]
  - NAUSEA [None]
  - SENSORY DISTURBANCE [None]
  - VISION BLURRED [None]
